FAERS Safety Report 7906554-2 (Version None)
Quarter: 2011Q4

REPORT INFORMATION
  Report Type: 
  Country: None (occurrence: None)
  Receive Date: 20111110
  Receipt Date: 20101029
  Transmission Date: 20120403
  Serious: No
  Sender: FDA-Public Use
  Company Number: US-MUTUAL PHARMACEUTICAL COMPANY, INC.-2010P1002108

PATIENT
  Sex: Female
  Weight: 83.92 kg

DRUGS (6)
  1. VITAMIN B-12 [Concomitant]
  2. GAVISCON ANTACID [Concomitant]
  3. PHENTERMINE HCL [Suspect]
     Indication: WEIGHT DECREASED
     Route: 048
     Dates: start: 20101005, end: 20101012
  4. IBUPROFEN [Concomitant]
  5. SYNTHROID [Concomitant]
     Route: 048
  6. PERI-COLACE [Concomitant]

REACTIONS (15)
  - INFREQUENT BOWEL MOVEMENTS [None]
  - IMPAIRED HEALING [None]
  - DYSURIA [None]
  - POLLAKIURIA [None]
  - GASTROOESOPHAGEAL REFLUX DISEASE [None]
  - DIZZINESS [None]
  - HYPOAESTHESIA [None]
  - NAUSEA [None]
  - BLADDER SPASM [None]
  - PAIN IN EXTREMITY [None]
  - DIARRHOEA [None]
  - FIBROMYALGIA [None]
  - BLADDER PAIN [None]
  - CHEST DISCOMFORT [None]
  - DYSPNOEA [None]
